FAERS Safety Report 9388973 (Version 1)
Quarter: 2013Q3

REPORT INFORMATION
  Report Type: Spontaneous
  Country: US (occurrence: US)
  Receive Date: 20130708
  Receipt Date: 20130708
  Transmission Date: 20140515
  Serious: Yes (Other)
  Sender: FDA-Public Use
  Company Number: US-WATSON-2013-11602

PATIENT
  Sex: Male

DRUGS (3)
  1. TRELSTAR (WATSON LABORATORIES) [Suspect]
     Indication: PROSTATIC SPECIFIC ANTIGEN INCREASED
     Dosage: 22.5 MG INJECTION 6 MONTHS AGO
     Route: 030
  2. TRELSTAR (WATSON LABORATORIES) [Suspect]
     Dosage: 22.5 MG INJECTION 1 YEAR AGO
     Route: 030
  3. ENALAPRIL [Concomitant]
     Indication: HYPERTENSION
     Route: 048

REACTIONS (5)
  - Suicidal ideation [Not Recovered/Not Resolved]
  - Hot flush [Not Recovered/Not Resolved]
  - Fatigue [Not Recovered/Not Resolved]
  - Sleep disorder [Not Recovered/Not Resolved]
  - Apathy [Not Recovered/Not Resolved]
